FAERS Safety Report 18778447 (Version 4)
Quarter: 2021Q1

REPORT INFORMATION
  Report Type: Report from Study
  Country: US (occurrence: US)
  Receive Date: 20210123
  Receipt Date: 20210317
  Transmission Date: 20210419
  Serious: No
  Sender: FDA-Public Use
  Company Number: NVSC2021US012237

PATIENT
  Sex: Female

DRUGS (2)
  1. COSENTYX [Suspect]
     Active Substance: SECUKINUMAB
     Dosage: 150 MG, Q2W
     Route: 058
     Dates: start: 202012
  2. COSENTYX [Suspect]
     Active Substance: SECUKINUMAB
     Indication: ANKYLOSING SPONDYLITIS
     Dosage: 150 MG, QW ( EVERY WEEK X 5 THEN EVERY 4 WEEKS)
     Route: 058
     Dates: start: 202008

REACTIONS (6)
  - Vomiting [Unknown]
  - Cough [Unknown]
  - COVID-19 [Unknown]
  - Fatigue [Unknown]
  - Paranasal sinus discomfort [Unknown]
  - Nasopharyngitis [Unknown]
